FAERS Safety Report 16651882 (Version 3)
Quarter: 2019Q3

REPORT INFORMATION
  Report Type: Report from Study
  Country: US (occurrence: US)
  Receive Date: 20190731
  Receipt Date: 20190806
  Transmission Date: 20191004
  Serious: Yes (Hospitalization)
  Sender: FDA-Public Use
  Company Number: US-JNJFOC-20190738034

PATIENT
  Age: 23 Year
  Sex: Male
  Weight: 88.53 kg

DRUGS (3)
  1. INFLIXIMAB, RECOMBINANT [Suspect]
     Active Substance: INFLIXIMAB
     Indication: INFLAMMATORY BOWEL DISEASE
     Route: 042
     Dates: start: 20110301, end: 20140317
  2. STELARA [Concomitant]
     Active Substance: USTEKINUMAB
     Dosage: LAST DOSE IN FEB/2019
     Route: 058
  3. ENTYVIO [Concomitant]
     Active Substance: VEDOLIZUMAB
     Route: 065

REACTIONS (1)
  - Gastrointestinal scarring [Recovered/Resolved]

NARRATIVE: CASE EVENT DATE: 201812
